FAERS Safety Report 13264337 (Version 3)
Quarter: 2017Q2

REPORT INFORMATION
  Report Type: Spontaneous
  Country: US (occurrence: US)
  Receive Date: 20170223
  Receipt Date: 20170413
  Transmission Date: 20170830
  Serious: Yes (Other)
  Sender: FDA-Public Use
  Company Number: US-BAYER-2017-034979

PATIENT
  Age: 16 Month
  Sex: Male

DRUGS (2)
  1. MIRALAX [Suspect]
     Active Substance: POLYETHYLENE GLYCOL 3350
     Dosage: 0.5 DF, QD
     Route: 048
     Dates: start: 201612, end: 20170218
  2. MIRALAX [Suspect]
     Active Substance: POLYETHYLENE GLYCOL 3350
     Dosage: UNK
     Route: 065

REACTIONS (7)
  - Autism spectrum disorder [Unknown]
  - Abnormal behaviour [Not Recovered/Not Resolved]
  - Product use issue [Unknown]
  - Screaming [Not Recovered/Not Resolved]
  - Attention deficit/hyperactivity disorder [Unknown]
  - Drug administered to patient of inappropriate age [Unknown]
  - Accidental exposure to product by child [Unknown]

NARRATIVE: CASE EVENT DATE: 201612
